FAERS Safety Report 5444099-2 (Version None)
Quarter: 2007Q3

REPORT INFORMATION
  Report Type: 
  Country: None (occurrence: None)
  Receive Date: 20070905
  Receipt Date: 20070827
  Transmission Date: 20080115
  Serious: Yes (Hospitalization)
  Sender: FDA-Public Use
  Company Number: US-SHR-US-2007-032232

PATIENT
  Age: 48 Year
  Sex: Female

DRUGS (3)
  1. BETASERON [Suspect]
     Indication: RELAPSING-REMITTING MULTIPLE SCLEROSIS
     Route: 058
     Dates: start: 19940202, end: 20050601
  2. BETASERON [Suspect]
     Dosage: 8 MIU, EVERY 2D
     Route: 058
     Dates: start: 20070524, end: 20070808
  3. ALL OTHER THERAPEUTIC PRODUCTS [Concomitant]

REACTIONS (5)
  - FALL [None]
  - FATIGUE [None]
  - FRACTURED COCCYX [None]
  - MYOCARDIAL INFARCTION [None]
  - SENSATION OF HEAVINESS [None]
